FAERS Safety Report 10102396 (Version 2)
Quarter: 2014Q2

REPORT INFORMATION
  Report Type: Report from Study
  Country: CA (occurrence: CA)
  Receive Date: 20140424
  Receipt Date: 20140424
  Transmission Date: 20141212
  Serious: Yes (Other)
  Sender: FDA-Public Use
  Company Number: CA-JNJFOC-20140319133

PATIENT
  Age: 20 Year
  Sex: Female
  Weight: 52.9 kg

DRUGS (3)
  1. REMICADE [Suspect]
     Indication: CROHN^S DISEASE
     Route: 042
     Dates: start: 20121204
  2. REMICADE [Suspect]
     Indication: CROHN^S DISEASE
     Route: 042
     Dates: start: 20120101
  3. IMURAN [Concomitant]
     Route: 065

REACTIONS (2)
  - Infectious mononucleosis [Recovering/Resolving]
  - Haematuria [Recovered/Resolved]
